FAERS Safety Report 8770373 (Version 1)
Quarter: 2012Q4

REPORT INFORMATION
  Report Type: 
  Country: NL (occurrence: TR)
  Receive Date: 20120906
  Receipt Date: 20120906
  Transmission Date: 20130627
  Serious: Yes (Other)
  Sender: FDA-Public Use
  Company Number: TR-NOVEN-12TR005242

PATIENT
  Age: 25 Year
  Sex: Female

DRUGS (2)
  1. PAROXETINE [Suspect]
     Indication: DEPRESSION
     Dosage: UNK
     Route: 065
  2. PAROXETINE [Suspect]
     Indication: AVOIDANT PERSONALITY DISORDER
     Dosage: 20-40 mg, qd
     Route: 065

REACTIONS (6)
  - Periventricular leukomalacia [Not Recovered/Not Resolved]
  - Cerebellar atrophy [Unknown]
  - Parkinsonism [Recovering/Resolving]
  - Slow speech [Unknown]
  - Gait disturbance [Unknown]
  - Salivary hypersecretion [Unknown]
